FAERS Safety Report 4554699-X (Version None)
Quarter: 2004Q4

REPORT INFORMATION
  Report Type: 
  Country: None (occurrence: None)
  Receive Date: 20041227
  Receipt Date: 20041021
  Transmission Date: 20050328
  Serious: No
  Sender: FDA-Public Use
  Company Number: US096441

PATIENT
  Sex: Female

DRUGS (1)
  1. SENSIPAR [Suspect]
     Indication: HYPERPARATHYROIDISM
     Dosage: 30 MG,  1 IN 1 DAYS, PO
     Route: 048
     Dates: start: 20040101, end: 20040101

REACTIONS (1)
  - DIARRHOEA [None]
